FAERS Safety Report 7078647-6 (Version None)
Quarter: 2010Q4

REPORT INFORMATION
  Report Type: 
  Country: None (occurrence: None)
  Receive Date: 20101102
  Receipt Date: 20101021
  Transmission Date: 20110411
  Serious: Yes (Hospitalization)
  Sender: FDA-Public Use
  Company Number: PHFR2010IE01955

PATIENT
  Sex: Male

DRUGS (6)
  1. CLOZARIL [Suspect]
     Dosage: 450 MG, UNK
     Route: 048
     Dates: start: 20100407
  2. KWELLS [Concomitant]
     Dosage: UNK
     Route: 048
  3. PROCYCLIDINE HYDROCHLORIDE 2MG TAB [Concomitant]
     Indication: EXTRAPYRAMIDAL DISORDER
     Dosage: 5 MG, BID
     Route: 048
     Dates: start: 20090101, end: 20101018
  4. FLURAZEPAM [Concomitant]
     Indication: INSOMNIA
     Dosage: 30 MG, NOCTE
     Route: 048
     Dates: start: 20090101, end: 20101018
  5. VALPROATE SODIUM [Concomitant]
     Dosage: 400 MG, BID
     Route: 048
     Dates: start: 20091201, end: 20100908
  6. CLONAZEPAM [Concomitant]
     Indication: AGITATION
     Dosage: 25 MG, BID
     Route: 048
     Dates: start: 20090728, end: 20100908

REACTIONS (4)
  - ABDOMINAL PAIN [None]
  - APPENDICECTOMY [None]
  - APPENDICITIS [None]
  - VOMITING [None]
